FAERS Safety Report 7898603-5 (Version None)
Quarter: 2011Q4

REPORT INFORMATION
  Report Type: 
  Country: None (occurrence: None)
  Receive Date: 20111107
  Receipt Date: 20111107
  Transmission Date: 20120403
  Serious: No
  Sender: FDA-Public Use
  Company Number: None

PATIENT
  Age: 70 Day
  Sex: Female
  Weight: 77.11 kg

DRUGS (4)
  1. LEVOTHYROXINE SODIUM [Concomitant]
  2. LIPITOR [Suspect]
     Indication: BLOOD CHOLESTEROL INCREASED
     Dosage: 1
     Route: 048
  3. PREMPRO -0.3-1.5 [Concomitant]
  4. ACTONEL [Concomitant]

REACTIONS (5)
  - ARTHRALGIA [None]
  - OEDEMA PERIPHERAL [None]
  - LUPUS-LIKE SYNDROME [None]
  - PAIN [None]
  - OSTEOARTHRITIS [None]
